FAERS Safety Report 10577907 (Version 1)
Quarter: 2014Q4

REPORT INFORMATION
  Report Type: Spontaneous
  Country: FR (occurrence: FR)
  Receive Date: 20141112
  Receipt Date: 20141112
  Transmission Date: 20150529
  Serious: Yes (Death, Hospitalization)
  Sender: FDA-Public Use
  Company Number: FR-ASTRAZENECA-2014SE83830

PATIENT
  Age: 13462 Day
  Sex: Female

DRUGS (7)
  1. SOLU-MEDROL [Concomitant]
     Active Substance: METHYLPREDNISOLONE SODIUM SUCCINATE
     Dates: start: 201409, end: 201409
  2. FRAXODI [Concomitant]
     Active Substance: NADROPARIN CALCIUM
     Dates: start: 201409
  3. AVASTIN [Suspect]
     Active Substance: BEVACIZUMAB
     Indication: BREAST CANCER METASTATIC
     Dosage: 25MG/ML (15MG/KG, ONE TIMES EVERY THREE WEEKS, IE 1575 MG)
     Route: 042
     Dates: start: 201311, end: 20140909
  4. CORTANCYL [Suspect]
     Active Substance: PREDNISONE
     Route: 048
     Dates: end: 201410
  5. FASLODEX [Suspect]
     Active Substance: FULVESTRANT
     Indication: BREAST CANCER METASTATIC
     Route: 030
     Dates: start: 201402, end: 20141009
  6. CORTANCYL [Suspect]
     Active Substance: PREDNISONE
     Route: 048
     Dates: start: 201409
  7. TAXOL [Concomitant]
     Active Substance: PACLITAXEL
     Indication: BREAST CANCER METASTATIC
     Dosage: SIX COURSES
     Dates: start: 201311, end: 201402

REACTIONS (3)
  - Necrotising fasciitis [Fatal]
  - Anal abscess [Fatal]
  - Cerebral venous thrombosis [Not Recovered/Not Resolved]

NARRATIVE: CASE EVENT DATE: 20140912
